FAERS Safety Report 7027941-3 (Version None)
Quarter: 2010Q4

REPORT INFORMATION
  Report Type: 
  Country: None (occurrence: None)
  Receive Date: 20101005
  Receipt Date: 20100924
  Transmission Date: 20110411
  Serious: Yes (Other)
  Sender: FDA-Public Use
  Company Number: US-BAYER-201034848NA

PATIENT
  Age: 43 Year
  Sex: Female
  Weight: 58 kg

DRUGS (7)
  1. BETASERON [Suspect]
     Indication: PRODUCT USED FOR UNKNOWN INDICATION
     Dosage: TOTAL DAILY DOSE: 8 MIU
     Route: 058
  2. DICLOFENAC EC [Concomitant]
  3. DANTROLENE SODIUM [Concomitant]
  4. ACETAMINOPHEN AND HYDROCODONE BITARTRATE [Concomitant]
     Dosage: DOSE: 5 - 500MG
  5. MULTI-VITAMIN [Concomitant]
  6. FERROUS SULFATE [Concomitant]
  7. TYLENOL [Concomitant]

REACTIONS (1)
  - INJECTION SITE INFECTION [None]
